FAERS Safety Report 7481059-4 (Version None)
Quarter: 2011Q2

REPORT INFORMATION
  Report Type: 
  Country: None (occurrence: None)
  Receive Date: 20110516
  Receipt Date: 20080930
  Transmission Date: 20111010
  Serious: Yes (Hospitalization, Disabling, Other)
  Sender: FDA-Public Use
  Company Number: US-BAYER-200834813NA

PATIENT
  Age: 54 Year
  Sex: Male
  Weight: 121 kg

DRUGS (24)
  1. COZAAR [Concomitant]
  2. HUMULIN 70/30 [Concomitant]
     Dosage: 70-30 U /ML
  3. ATROPINE [Concomitant]
     Dosage: UNK
     Dates: start: 20060921
  4. ZETIA [Concomitant]
     Dosage: 10 MG, QD
     Route: 048
  5. LIDOCAINE [Concomitant]
     Dosage: UNK
     Dates: start: 20060921
  6. ANCEF [Concomitant]
     Dosage: UNK
     Dates: start: 20060921
  7. TRASYLOL [Suspect]
     Dosage: 200 ML PRIME PUMP
     Route: 042
     Dates: end: 20060921
  8. MILRINONE [Concomitant]
     Dosage: UNK
     Dates: start: 20060921
  9. HEPARIN [Concomitant]
     Dosage: UNK
     Dates: start: 20060921
  10. ALLOPURINOL [Concomitant]
     Dosage: 300 MG, QD
  11. PROTAMINE SULFATE [Concomitant]
     Dosage: UNK
     Dates: start: 20060921
  12. AMIODARONE HCL [Concomitant]
     Dosage: UNK
     Dates: start: 20060921
  13. INSULIN [INSULIN] [Concomitant]
     Dosage: UNK
     Dates: start: 20060921
  14. MORPHINE [Concomitant]
     Dosage: UNK
     Dates: start: 20060921
  15. TRASYLOL [Suspect]
     Indication: CORONARY ARTERY BYPASS
     Dosage: 1 ML TEST DOSE
     Route: 042
     Dates: start: 20060921
  16. LASIX [Concomitant]
     Dosage: 40 MG, BID
     Route: 048
  17. LABETALOL HCL [Concomitant]
     Dosage: 100 MG
     Route: 048
  18. IMDUR [Concomitant]
     Dosage: 30 MG, QD
     Route: 048
  19. ASPIRIN [Concomitant]
     Dosage: 325 MG, QD
     Route: 048
  20. LEVOTHROID [Concomitant]
     Dosage: 0.175 MG, QD
  21. HUMULIN N [INSULIN INJECTION, ISOPHANE] [Concomitant]
     Dosage: 100U/ML
  22. ANDRODERM [Concomitant]
     Dosage: 5 MG /24 HOURS
     Route: 061
  23. LEVOPHED [Concomitant]
     Dosage: UNK
     Dates: start: 20060921
  24. RED BLOOD CELLS, CONCENTRATED [Concomitant]
     Dosage: 2 U, UNK
     Dates: start: 20060921

REACTIONS (12)
  - ANXIETY [None]
  - RENAL INJURY [None]
  - EMOTIONAL DISTRESS [None]
  - RENAL IMPAIRMENT [None]
  - RENAL FAILURE ACUTE [None]
  - RENAL FAILURE [None]
  - INJURY [None]
  - STRESS [None]
  - UNEVALUABLE EVENT [None]
  - FEAR [None]
  - PAIN [None]
  - MOBILITY DECREASED [None]
